FAERS Safety Report 10822908 (Version 1)
Quarter: 2015Q1

REPORT INFORMATION
  Report Type: Spontaneous
  Country: US (occurrence: US)
  Receive Date: 20150218
  Receipt Date: 20150218
  Transmission Date: 20150721
  Serious: No
  Sender: FDA-Public Use
  Company Number: US-ABBVIE-14K-163-1307424-00

PATIENT
  Age: 56 Year
  Sex: Female
  Weight: 79.45 kg

DRUGS (3)
  1. HUMIRA [Suspect]
     Active Substance: ADALIMUMAB
     Indication: PSORIATIC ARTHROPATHY
     Route: 065
     Dates: start: 20140916
  2. RETINOL [Concomitant]
     Active Substance: RETINOL
     Indication: SKIN COSMETIC PROCEDURE
  3. HUMIRA [Suspect]
     Active Substance: ADALIMUMAB
     Indication: PSORIASIS
     Route: 065
     Dates: start: 20140902, end: 20140902

REACTIONS (9)
  - Injection site urticaria [Not Recovered/Not Resolved]
  - Psoriasis [Recovered/Resolved]
  - Allergy to chemicals [Recovered/Resolved]
  - Joint swelling [Recovered/Resolved]
  - Incorrect dose administered [Unknown]
  - Dry skin [Recovered/Resolved]
  - Injection site pain [Not Recovered/Not Resolved]
  - Dry eye [Recovered/Resolved]
  - Device issue [Unknown]

NARRATIVE: CASE EVENT DATE: 201409
